FAERS Safety Report 14348156 (Version 1)
Quarter: 2018Q1

REPORT INFORMATION
  Report Type: Spontaneous
  Country: US (occurrence: US)
  Receive Date: 20180103
  Receipt Date: 20180103
  Transmission Date: 20180509
  Serious: No
  Sender: FDA-Public Use
  Company Number: US-BAUSCH-BL-2017-028185

PATIENT
  Sex: Female

DRUGS (1)
  1. XENAZINE [Suspect]
     Active Substance: TETRABENAZINE
     Indication: HUNTINGTON^S DISEASE
     Dosage: 1 TABLET IN THE MORNING, 2 TABLETS AT BEDTIME, FOUR TABLETS A DAY OR TWO TABLETS A DAY
     Route: 048
     Dates: start: 201409

REACTIONS (1)
  - Treatment noncompliance [Unknown]
